FAERS Safety Report 7052784-4 (Version None)
Quarter: 2010Q4

REPORT INFORMATION
  Report Type: 
  Country: None (occurrence: None)
  Receive Date: 20101014
  Receipt Date: 20101008
  Transmission Date: 20110411
  Serious: Yes (Death, Life-Threatening, Other)
  Sender: FDA-Public Use
  Company Number: 2010SP054001

PATIENT
  Age: 26 Year
  Sex: Male

DRUGS (1)
  1. TEMOZOLOMIDE [Suspect]
     Indication: OLIGODENDROGLIOMA
     Dosage: 100 MCG/M2

REACTIONS (5)
  - CEREBELLAR HAEMATOMA [None]
  - HAEMATOMA [None]
  - INTRACRANIAL PRESSURE INCREASED [None]
  - NEUROLOGICAL EXAMINATION ABNORMAL [None]
  - PLATELET COUNT DECREASED [None]
